FAERS Safety Report 9158014 (Version 1)
Quarter: 2013Q1

REPORT INFORMATION
  Report Type: Spontaneous
  Country: CA (occurrence: CA)
  Receive Date: 20130312
  Receipt Date: 20130312
  Transmission Date: 20140127
  Serious: Yes (Life-Threatening, Other)
  Sender: FDA-Public Use
  Company Number: CA-PFIZER INC-2012227095

PATIENT
  Age: 38 Year
  Sex: Male
  Weight: 86 kg

DRUGS (5)
  1. CHAMPIX [Suspect]
     Indication: SMOKING CESSATION THERAPY
     Dosage: 0.5 MG, 1X/DAY
     Dates: start: 20090710, end: 20090712
  2. CHAMPIX [Suspect]
     Dosage: 0.5 MG, 2X/DAY
     Dates: start: 20090713, end: 20090716
  3. CHAMPIX [Suspect]
     Dosage: 1 MG, 2X/DAY
     Route: 048
     Dates: start: 20090717
  4. CHAMPIX [Suspect]
     Dosage: 0.5 MG, UNK
  5. CHAMPIX [Suspect]
     Dosage: 1/3 IN THE MORNING AND EVENING
     Dates: start: 20090911, end: 20090912

REACTIONS (17)
  - Suicidal ideation [Unknown]
  - Homicidal ideation [Unknown]
  - Drug dependence [Unknown]
  - Emotional disorder [Unknown]
  - Irritability [Unknown]
  - Anger [Unknown]
  - Negative thoughts [Unknown]
  - Sleep disorder [Unknown]
  - Aggression [Recovered/Resolved]
  - Tobacco withdrawal symptoms [Unknown]
  - Hypersomnia [Unknown]
  - Tachyphrenia [Unknown]
  - Burnout syndrome [Unknown]
  - Vomiting [Unknown]
  - Nausea [Unknown]
  - Fatigue [Unknown]
  - Decreased activity [Unknown]
